FAERS Safety Report 8563693 (Version 3)
Quarter: 2013Q2

REPORT INFORMATION
  Report Type: Report from Study
  Country: FR (occurrence: FR)
  Receive Date: 20120515
  Receipt Date: 20130405
  Transmission Date: 20140414
  Serious: Yes (Hospitalization)
  Sender: FDA-Public Use
  Company Number: FR-TEVA-337488ISR

PATIENT
  Age: 58 Year
  Sex: Female
  Weight: 48 kg

DRUGS (7)
  1. CEP-9722 [Suspect]
     Indication: NEOPLASM
     Dosage: 600 MILLIGRAM DAILY;
     Route: 048
     Dates: start: 20120215, end: 20120424
  2. CISPLATIN [Suspect]
     Route: 042
     Dates: start: 20120117, end: 20120418
  3. GEMCITABINE [Suspect]
     Route: 042
     Dates: start: 20120117, end: 20120418
  4. BISOPROLOL [Concomitant]
     Indication: TACHYCARDIA
     Dosage: 5 MILLIGRAM DAILY;
     Route: 048
     Dates: start: 2010
  5. ALPRAZOLAM [Concomitant]
     Indication: PROPHYLAXIS
     Dosage: 1 MILLIGRAM DAILY;
     Route: 048
     Dates: start: 2011
  6. EMEND [Concomitant]
     Dates: start: 20120418
  7. EMEND [Concomitant]
     Dates: start: 20120419, end: 20120420

REACTIONS (1)
  - Deep vein thrombosis [Unknown]
